FAERS Safety Report 12451764 (Version 1)
Quarter: 2016Q2

REPORT INFORMATION
  Report Type: Spontaneous
  Country: JP (occurrence: JP)
  Receive Date: 20160609
  Receipt Date: 20160609
  Transmission Date: 20160815
  Serious: Yes (Hospitalization, Other)
  Sender: FDA-Public Use
  Company Number: JP-ELI LILLY CANADA, INC-BMS-2016-004015

PATIENT
  Age: 79 Year
  Sex: Male

DRUGS (7)
  1. ALDACTONE A [Concomitant]
     Active Substance: SPIRONOLACTONE
     Dosage: UNK, UNKNOWN
  2. WARFARIN [Concomitant]
     Active Substance: WARFARIN
     Dosage: UNK, UNKNOWN
  3. LASIX [Concomitant]
     Active Substance: FUROSEMIDE
     Dosage: UNK, UNKNOWN
  4. BLOPRESS [Concomitant]
     Active Substance: CANDESARTAN CILEXETIL
     Dosage: UNK, UNKNOWN
  5. ERBITUX [Suspect]
     Active Substance: CETUXIMAB
     Dosage: 250 MG/M2, WEEKLY (1/W)
     Route: 042
  6. ZYLORIC [Concomitant]
     Active Substance: ALLOPURINOL
     Dosage: UNK, UNKNOWN
  7. ERBITUX [Suspect]
     Active Substance: CETUXIMAB
     Indication: LARYNGEAL CANCER
     Dosage: 400 MG/M2, WEEKLY (1/W)
     Route: 042
     Dates: start: 20140116

REACTIONS (4)
  - Endocarditis staphylococcal [Unknown]
  - Mucosal inflammation [Unknown]
  - Sepsis [Unknown]
  - Pneumonia aspiration [Unknown]
